FAERS Safety Report 7629654-3 (Version None)
Quarter: 2011Q3

REPORT INFORMATION
  Report Type: 
  Country: None (occurrence: None)
  Receive Date: 20110722
  Receipt Date: 20110715
  Transmission Date: 20111222
  Serious: Yes (Other)
  Sender: FDA-Public Use
  Company Number: RU-JNJFOC-20110705497

PATIENT
  Age: 53 Year
  Sex: Female
  Weight: 62 kg

DRUGS (1)
  1. TOPAMAX [Suspect]
     Indication: EPILEPSY
     Route: 048
     Dates: start: 20110317, end: 20110711

REACTIONS (5)
  - VISUAL ACUITY REDUCED [None]
  - COUGH [None]
  - DYSPNOEA [None]
  - EYE PAIN [None]
  - PARAESTHESIA [None]
